FAERS Safety Report 17257694 (Version 1)
Quarter: 2020Q1

REPORT INFORMATION
  Report Type: Other
  Country: AU (occurrence: AU)
  Receive Date: 20200110
  Receipt Date: 20200110
  Transmission Date: 20200409
  Serious: Yes (Death)
  Sender: FDA-Public Use
  Company Number: AU-SUNRISE PHARMACEUTICAL, INC.-2078819

PATIENT
  Age: 70 Year
  Sex: Female

DRUGS (5)
  1. TAPENTADOL [Suspect]
     Active Substance: TAPENTADOL
     Route: 065
  2. DESVENLAFAXINE. [Suspect]
     Active Substance: DESVENLAFAXINE
     Route: 065
  3. PREGABALIN. [Suspect]
     Active Substance: PREGABALIN
     Route: 065
  4. OXYCODONE HYDROCHLORIDE. [Suspect]
     Active Substance: OXYCODONE HYDROCHLORIDE
     Indication: PRODUCT USED FOR UNKNOWN INDICATION
     Route: 065
  5. HYDROMORPHONE HCL [Suspect]
     Active Substance: HYDROMORPHONE HYDROCHLORIDE
     Route: 065

REACTIONS (1)
  - Pneumonia [Fatal]
